FAERS Safety Report 14328282 (Version 2)
Quarter: 2018Q1

REPORT INFORMATION
  Report Type: Spontaneous
  Country: US (occurrence: US)
  Receive Date: 20171227
  Receipt Date: 20180219
  Transmission Date: 20180509
  Serious: No
  Sender: FDA-Public Use
  Company Number: US-PFIZER INC-2017548886

PATIENT
  Age: 62 Year
  Sex: Female

DRUGS (5)
  1. LETROZOLE. [Concomitant]
     Active Substance: LETROZOLE
     Dosage: 36 MG, 1X/DAY
  2. GLUCOSAMIN + CHONDROITIN [Concomitant]
     Dosage: UNK, 2X/DAY
  3. IBRANCE [Suspect]
     Active Substance: PALBOCICLIB
     Indication: BREAST CANCER METASTATIC
     Dosage: 100 MG, CYCLIC (21DAYS 7 DAYS OFF)
     Dates: start: 20170801
  4. MORPHINE [Concomitant]
     Active Substance: MORPHINE
     Dosage: 60 MG, 3X/DAY
  5. OXYCODONE [Concomitant]
     Active Substance: OXYCODONE
     Dosage: UNK, AS NEEDED (10, UNITS WERE NOT PROVIDED)

REACTIONS (2)
  - Memory impairment [Unknown]
  - Weight decreased [Not Recovered/Not Resolved]
